FAERS Safety Report 6228227-7 (Version None)
Quarter: 2009Q2

REPORT INFORMATION
  Report Type: 
  Country: None (occurrence: None)
  Receive Date: 20090612
  Receipt Date: 20090608
  Transmission Date: 20091009
  Serious: Yes (Death, Hospitalization, Other)
  Sender: FDA-Public Use
  Company Number: US-ELI_LILLY_AND_COMPANY-US200904001647

PATIENT
  Age: 83 Year
  Sex: Male

DRUGS (8)
  1. ALIMTA [Suspect]
     Indication: LUNG ADENOCARCINOMA
     Dosage: 850 MG,
     Route: 042
     Dates: start: 20090326, end: 20090401
  2. AVASTIN [Concomitant]
     Indication: LUNG ADENOCARCINOMA
     Dosage: 1150 MG, UNK
     Dates: start: 20090326, end: 20090401
  3. CARBOPLATIN [Concomitant]
     Indication: LUNG ADENOCARCINOMA
     Dosage: OTHER;AUC=5
     Dates: start: 20090326, end: 20090401
  4. NEULASTA [Concomitant]
     Dosage: 6 MG, UNK
     Dates: start: 20090301, end: 20090401
  5. ZOMETA [Concomitant]
     Dosage: 4 MG, OTHER
     Dates: start: 20090301, end: 20090401
  6. FOLIC ACID [Concomitant]
     Indication: VITAMIN SUPPLEMENTATION
  7. VITAMIN B-12 [Concomitant]
     Indication: VITAMIN SUPPLEMENTATION
  8. CORTICOSTEROIDS [Concomitant]
     Indication: PROPHYLAXIS

REACTIONS (3)
  - MALIGNANT NEOPLASM PROGRESSION [None]
  - PSEUDOMEMBRANOUS COLITIS [None]
  - RESPIRATORY FAILURE [None]
